FAERS Safety Report 10041390 (Version 1)
Quarter: 2014Q1

REPORT INFORMATION
  Report Type: Spontaneous
  Country: JP (occurrence: None)
  Receive Date: 20140325
  Receipt Date: 20140325
  Transmission Date: 20141002
  Serious: Yes (Other)
  Sender: FDA-Public Use
  Company Number: B0979267A

PATIENT
  Sex: 0

DRUGS (1)
  1. ZIAGEN [Suspect]
     Indication: HIV INFECTION

REACTIONS (7)
  - Apnoea neonatal [None]
  - Rash [None]
  - Anaemia [None]
  - Foetal exposure during pregnancy [None]
  - Foetal exposure during pregnancy [None]
  - Caesarean section [None]
  - Pyrexia [None]
